FAERS Safety Report 22061605 (Version 1)
Quarter: 2023Q1

REPORT INFORMATION
  Report Type: Report from Study
  Country: FR (occurrence: FR)
  Receive Date: 20230304
  Receipt Date: 20230304
  Transmission Date: 20230418
  Serious: Yes (Disabling, Other)
  Sender: FDA-Public Use
  Company Number: FR-ABBVIE-4128863

PATIENT
  Age: 76 Year
  Sex: Male

DRUGS (4)
  1. CARBIDOPA\LEVODOPA [Suspect]
     Active Substance: CARBIDOPA\LEVODOPA
     Indication: Parkinson^s disease
     Dosage: CONTINUOUS FLOW RATE DURING THE DAY 4.3ML/H
     Route: 050
     Dates: start: 202207, end: 20220830
  2. CARBIDOPA\LEVODOPA [Suspect]
     Active Substance: CARBIDOPA\LEVODOPA
     Dosage: INCREASE THE AFTERNOON FLOW BY 0.1ML EVERY 72 HOURS/CONTINUOUS FLOW RATE DURING THE DAY 4.4ML/H
     Route: 050
     Dates: start: 20220830, end: 202210
  3. CARBIDOPA\LEVODOPA [Suspect]
     Active Substance: CARBIDOPA\LEVODOPA
     Dosage: MORNING DOSE 7ML/ INCREASE IN NIGHT FLOW TO 2.5ML/H FROM 11PM TO 6AM  (INSTEAD OF 2ML)?ROA: PERCU...
     Dates: start: 202210
  4. BENSERAZIDE HYDROCHLORIDE\LEVODOPA [Concomitant]
     Active Substance: BENSERAZIDE HYDROCHLORIDE\LEVODOPA
     Indication: Product used for unknown indication
     Dates: end: 20220830

REACTIONS (15)
  - On and off phenomenon [Not Recovered/Not Resolved]
  - Apraxia [Unknown]
  - Salivary hypersecretion [Unknown]
  - Dysphagia [Unknown]
  - Fall [Unknown]
  - Dysphonia [Unknown]
  - Freezing phenomenon [Unknown]
  - Decreased appetite [Unknown]
  - Balance disorder [Unknown]
  - Somnolence [Unknown]
  - Orthostatic hypotension [Unknown]
  - Micturition urgency [Unknown]
  - Erysipelas [Unknown]
  - Dysarthria [Unknown]
  - Bradykinesia [Unknown]

NARRATIVE: CASE EVENT DATE: 20220101
